FAERS Safety Report 15042794 (Version 1)
Quarter: 2018Q2

REPORT INFORMATION
  Report Type: Spontaneous
  Country: DE (occurrence: DE)
  Receive Date: 20180621
  Receipt Date: 20180621
  Transmission Date: 20180711
  Serious: Yes (Hospitalization)
  Sender: FDA-Public Use
  Company Number: DE-PFIZER INC-2018245778

PATIENT
  Age: 71 Year
  Sex: Male

DRUGS (7)
  1. METOPROLOL. [Suspect]
     Active Substance: METOPROLOL
     Dosage: 47.5 MG, 2X/DAY (1-0-1-0)
  2. CEFASEL [Concomitant]
     Dosage: 50 UG, 1X/DAY (0-0-1-0)
  3. BACLOFEN. [Suspect]
     Active Substance: BACLOFEN
     Dosage: 5 MG, 3X/DAY (1-1-1-0)
  4. VENLAFAXINE HCL [Suspect]
     Active Substance: VENLAFAXINE HYDROCHLORIDE
     Dosage: 75 MG, 1X/DAY (0-1-0-0)
  5. GABAPENTIN. [Suspect]
     Active Substance: GABAPENTIN
     Dosage: 300 MG, 2X/DAY (1-0-1-0)
  6. VALSARTAN. [Suspect]
     Active Substance: VALSARTAN
     Dosage: 80 MG, 1X/DAY (0-0-1-0)
  7. UNIZINK [Concomitant]
     Active Substance: AVOBENZONE\HOMOSALATE\OCTISALATE
     Dosage: 50 MG, 1X/DAY 81-0-0-09

REACTIONS (3)
  - General physical health deterioration [Unknown]
  - Fatigue [Unknown]
  - Muscular weakness [Unknown]
